FAERS Safety Report 15261095 (Version 1)
Quarter: 2018Q3

REPORT INFORMATION
  Report Type: Spontaneous
  Country: CA (occurrence: CA)
  Receive Date: 20180809
  Receipt Date: 20180809
  Transmission Date: 20181010
  Serious: Yes (Hospitalization, Other)
  Sender: FDA-Public Use
  Company Number: CA-TEVA-2018-CA-935692

PATIENT
  Age: 75 Year
  Sex: Female
  Weight: 62 kg

DRUGS (1)
  1. METHOTREXATE. [Suspect]
     Active Substance: METHOTREXATE
     Indication: RHEUMATOID ARTHRITIS
     Route: 058

REACTIONS (3)
  - Dyspnoea [Recovered/Resolved]
  - Interstitial lung disease [Recovered/Resolved]
  - Pulmonary toxicity [Recovered/Resolved]
